FAERS Safety Report 25587084 (Version 1)
Quarter: 2025Q3

REPORT INFORMATION
  Report Type: Spontaneous
  Country: US (occurrence: US)
  Receive Date: 20250721
  Receipt Date: 20250721
  Transmission Date: 20251020
  Serious: No
  Sender: Phathom Pharmaceuticals
  Company Number: US-PHATHOM PHARMACEUTICALS INC.-2025PHT01255

PATIENT
  Sex: Female

DRUGS (12)
  1. VOQUEZNA [Suspect]
     Active Substance: VONOPRAZAN FUMARATE
     Dosage: 10 MG, 1X/DAY
     Route: 048
  2. CARAFATE [Concomitant]
     Active Substance: SUCRALFATE
  3. CITALOPRAM [Concomitant]
     Active Substance: CITALOPRAM
  4. FENOFIBRATE [Concomitant]
     Active Substance: FENOFIBRATE
  5. NEXLIZET [Concomitant]
     Active Substance: BEMPEDOIC ACID\EZETIMIBE
  6. VITAMIN B12 [Concomitant]
     Active Substance: CYANOCOBALAMIN
  7. LEVOTHYROXINE [Concomitant]
     Active Substance: LEVOTHYROXINE
  8. ASPIRIN [Concomitant]
     Active Substance: ASPIRIN
  9. NITROGLYCERIN [Concomitant]
     Active Substance: NITROGLYCERIN
  10. NOVOLOG [Concomitant]
     Active Substance: INSULIN ASPART
  11. LISINOPRIL [Concomitant]
     Active Substance: LISINOPRIL
  12. METOPROLOL SUCCINATE [Concomitant]
     Active Substance: METOPROLOL SUCCINATE

REACTIONS (1)
  - Gastric haemorrhage [Recovered/Resolved]
